FAERS Safety Report 9266788 (Version 1)
Quarter: 2013Q2

REPORT INFORMATION
  Report Type: Spontaneous
  Country: US (occurrence: US)
  Receive Date: 20130502
  Receipt Date: 20130502
  Transmission Date: 20140414
  Serious: Yes (Hospitalization, Other)
  Sender: FDA-Public Use
  Company Number: US-PFIZER INC-2013133238

PATIENT
  Age: 62 Year
  Sex: Female

DRUGS (2)
  1. DETROL LA [Suspect]
     Dosage: 2 MG, UNK
     Route: 048
  2. VISTARIL [Suspect]
     Dosage: 50 MG, UNK
     Route: 048

REACTIONS (2)
  - Limb injury [Unknown]
  - Localised infection [Unknown]
